FAERS Safety Report 23346453 (Version 1)
Quarter: 2023Q4

REPORT INFORMATION
  Report Type: Spontaneous
  Country: US (occurrence: None)
  Receive Date: 20231227
  Receipt Date: 20231227
  Transmission Date: 20240109
  Serious: Yes (Hospitalization)
  Sender: FDA-Public Use
  Company Number: None

PATIENT
  Age: 57 Year
  Sex: Male
  Weight: 87.7 kg

DRUGS (6)
  1. YESCARTA [Suspect]
     Active Substance: AXICABTAGENE CILOLEUCEL
     Indication: Diffuse large B-cell lymphoma
     Dosage: OTHER FREQUENCY : ONCE;?
     Route: 041
     Dates: start: 20230810
  2. ACTEMRA [Concomitant]
     Active Substance: TOCILIZUMAB
     Dates: start: 20230813, end: 20230813
  3. anakinra (Kineret) [Concomitant]
     Dates: start: 20230817, end: 20230821
  4. dexAMETHasone (Decadron) injection [Concomitant]
     Dates: start: 20230812, end: 20230822
  5. levETIRAcetam (Keppra [Concomitant]
     Dates: start: 20230809, end: 20231013
  6. lacosamide (Vimpat) [Concomitant]
     Dates: start: 20230817, end: 20230818

REACTIONS (1)
  - Immune effector cell-associated neurotoxicity syndrome [None]

NARRATIVE: CASE EVENT DATE: 20230101
